FAERS Safety Report 5734029-8 (Version None)
Quarter: 2008Q2

REPORT INFORMATION
  Report Type: 
  Country: None (occurrence: None)
  Receive Date: 20080509
  Receipt Date: 20080430
  Transmission Date: 20081010
  Serious: Yes (Hospitalization, Other)
  Sender: FDA-Public Use
  Company Number: US-PFIZER INC-2008038174

PATIENT
  Sex: Female
  Weight: 92.5 kg

DRUGS (7)
  1. GEODON [Suspect]
     Indication: BIPOLAR II DISORDER
  2. FLUOXETINE [Suspect]
  3. BENZTROPINE MESYLATE [Suspect]
  4. TRAZODONE HCL [Suspect]
  5. LEVOTHYROXINE SODIUM [Concomitant]
  6. ALBUTEROL [Concomitant]
     Route: 055
  7. ALCOHOL [Concomitant]

REACTIONS (4)
  - DRUG SCREEN POSITIVE [None]
  - ELECTROCARDIOGRAM QT PROLONGED [None]
  - INTENTIONAL OVERDOSE [None]
  - VENTRICULAR FIBRILLATION [None]
